FAERS Safety Report 25160878 (Version 1)
Quarter: 2025Q2

REPORT INFORMATION
  Report Type: Spontaneous
  Country: IL (occurrence: IL)
  Receive Date: 20250404
  Receipt Date: 20250404
  Transmission Date: 20250716
  Serious: Yes (Death)
  Sender: GENMAB
  Company Number: IL-ABBVIE-6208470

PATIENT
  Age: 74 Year
  Sex: Male

DRUGS (1)
  1. EPCORITAMAB [Suspect]
     Active Substance: EPCORITAMAB
     Indication: Diffuse large B-cell lymphoma stage IV
     Route: 065
     Dates: start: 202304

REACTIONS (5)
  - Diffuse large B-cell lymphoma stage IV [Fatal]
  - Hypotension [Unknown]
  - Confusional state [Unknown]
  - Neutropenia [Unknown]
  - Pyrexia [Unknown]
